FAERS Safety Report 6234244-3 (Version None)
Quarter: 2009Q2

REPORT INFORMATION
  Report Type: 
  Country: None (occurrence: None)
  Receive Date: 20090618
  Receipt Date: 20090615
  Transmission Date: 20091009
  Serious: Yes (Hospitalization)
  Sender: FDA-Public Use
  Company Number: FR-JNJFOC-20090604683

PATIENT
  Age: 71 Year
  Sex: Female

DRUGS (14)
  1. TAVANIC [Suspect]
     Indication: ABSCESS
     Route: 065
  2. AUGMENTIN [Suspect]
     Indication: ABSCESS
     Route: 065
  3. NEXIUM [Concomitant]
     Route: 065
  4. NITRODERM [Concomitant]
     Route: 065
  5. KARDEGIC [Concomitant]
     Route: 065
  6. ALDACTONE [Concomitant]
     Route: 065
  7. LASIX [Concomitant]
     Route: 065
  8. NICARDIPINE HCL [Concomitant]
     Route: 065
  9. XANAX [Concomitant]
     Route: 065
  10. TEMESTA [Concomitant]
     Route: 065
  11. DOLIPRANE [Concomitant]
     Route: 065
  12. SPASFON [Concomitant]
     Route: 065
  13. ALUMINUM HYDROXIDE AND MAGNESIUM TRISILICATE [Concomitant]
     Route: 065
  14. LEVOTHYROXINE SODIUM [Concomitant]
     Indication: BLOOD THYROID STIMULATING HORMONE INCREASED
     Route: 065

REACTIONS (2)
  - MICROCYTIC ANAEMIA [None]
  - THROMBOCYTOPENIA [None]
